FAERS Safety Report 21415982 (Version 2)
Quarter: 2024Q3

REPORT INFORMATION
  Report Type: Spontaneous
  Country: US (occurrence: US)
  Receive Date: 20221006
  Receipt Date: 20240828
  Transmission Date: 20241017
  Serious: No
  Sender: SANOFI AVENTIS
  Company Number: US-SA-SAC20220930000985

PATIENT
  Age: 64 Year
  Sex: Male

DRUGS (1)
  1. DUPIXENT [Suspect]
     Active Substance: DUPILUMAB
     Indication: Dermatitis atopic
     Dosage: 300 MG, QOW
     Route: 058

REACTIONS (7)
  - Peripheral swelling [Recovered/Resolved]
  - Arthropod bite [Recovered/Resolved]
  - Dry skin [Unknown]
  - Pruritus [Unknown]
  - Drug effect less than expected [Unknown]
  - Eye pruritus [Unknown]
  - Dry eye [Unknown]
